FAERS Safety Report 13377357 (Version 1)
Quarter: 2017Q1

REPORT INFORMATION
  Report Type: Spontaneous
  Country: US (occurrence: US)
  Receive Date: 20170328
  Receipt Date: 20170328
  Transmission Date: 20170429
  Serious: Yes (Life-Threatening, Hospitalization)
  Sender: FDA-Public Use
  Company Number: None

PATIENT
  Age: 61 Year
  Sex: Male
  Weight: 66.9 kg

DRUGS (2)
  1. OPDIVO [Suspect]
     Active Substance: NIVOLUMAB
     Indication: METASTATIC MALIGNANT MELANOMA
     Dosage: ?          OTHER FREQUENCY:EVERY 3 WEEKS;?
     Route: 041
     Dates: start: 20160815, end: 20161024
  2. YERVOY [Concomitant]
     Active Substance: IPILIMUMAB

REACTIONS (3)
  - Dysphagia [None]
  - Toxic epidermal necrolysis [None]
  - Autoimmune colitis [None]

NARRATIVE: CASE EVENT DATE: 20161119
